FAERS Safety Report 6466261-2 (Version None)
Quarter: 2009Q4

REPORT INFORMATION
  Report Type: 
  Country: None (occurrence: None)
  Receive Date: 20091202
  Receipt Date: 20091124
  Transmission Date: 20100525
  Serious: Yes (Other)
  Sender: FDA-Public Use
  Company Number: PHHY2009MX44417

PATIENT
  Sex: Female

DRUGS (7)
  1. RASILEZ [Suspect]
     Indication: HYPERTENSION
     Dosage: 1 TABLET (300 MG) DAILY
     Route: 048
     Dates: start: 20090703, end: 20090915
  2. GLUCOPHAGE [Concomitant]
  3. LYRICA [Concomitant]
  4. LISINOPRIL [Concomitant]
  5. TENORMIN [Concomitant]
     Dosage: 2 TABLETS (50 MG)/DAY
  6. BLOPRESS PLUS [Concomitant]
  7. CONTUMAX [Concomitant]
     Indication: CONSTIPATION

REACTIONS (4)
  - CONDITION AGGRAVATED [None]
  - DISCOMFORT [None]
  - HYPERTENSION [None]
  - OEDEMA PERIPHERAL [None]
